FAERS Safety Report 17089196 (Version 4)
Quarter: 2020Q2

REPORT INFORMATION
  Report Type: Report from Study
  Country: GB (occurrence: GB)
  Receive Date: 20191128
  Receipt Date: 20200519
  Transmission Date: 20200713
  Serious: Yes (Other)
  Sender: FDA-Public Use
  Company Number: NVSC2019GB022598

PATIENT
  Age: 2 Year
  Sex: Male
  Weight: 13.25 kg

DRUGS (5)
  1. RANITIDIN [Concomitant]
     Active Substance: RANITIDINE HYDROCHLORIDE
     Indication: REFLUX GASTRITIS
     Dosage: 1 DF, QD
     Route: 048
  2. DABRAFENIB [Suspect]
     Active Substance: DABRAFENIB
     Indication: PRODUCT USED FOR UNKNOWN INDICATION
     Dosage: 20 MG, BID
     Route: 048
     Dates: start: 20190614
  3. ONDANSETRON [Concomitant]
     Active Substance: ONDANSETRON
     Indication: NAUSEA
     Dosage: 1 DF, QD
     Route: 048
  4. CHLORPHENIRAMINE. [Concomitant]
     Active Substance: CHLORPHENIRAMINE
     Indication: PRURITUS
     Dosage: UNK
     Route: 048
  5. METOCHLOPRAMIDE [Concomitant]
     Active Substance: METOCLOPRAMIDE HYDROCHLORIDE
     Indication: MALAISE
     Dosage: UNK
     Route: 048

REACTIONS (7)
  - Rhinitis [Recovered/Resolved]
  - Skin papilloma [Not Recovered/Not Resolved]
  - Constipation [Not Recovered/Not Resolved]
  - Dermatitis bullous [Recovered/Resolved]
  - Condition aggravated [Recovering/Resolving]
  - Ear swelling [Recovered/Resolved]
  - Erythema nodosum [Recovering/Resolving]

NARRATIVE: CASE EVENT DATE: 20190712
